FAERS Safety Report 8437109-1 (Version None)
Quarter: 2012Q2

REPORT INFORMATION
  Report Type: 
  Country: None (occurrence: None)
  Receive Date: 20120614
  Receipt Date: 20120405
  Transmission Date: 20120825
  Serious: Yes (Hospitalization)
  Sender: FDA-Public Use
  Company Number: US-AMGEN-USASP2011061712

PATIENT
  Age: 87 Year
  Sex: Male
  Weight: 72.562 kg

DRUGS (2)
  1. XGEVA [Suspect]
     Indication: METASTASES TO BONE
     Dosage: 120 MG, Q4WK
     Route: 030
     Dates: start: 20111116, end: 20111120
  2. LUPRON [Concomitant]

REACTIONS (1)
  - HYPOCALCAEMIA [None]
